FAERS Safety Report 20618193 (Version 3)
Quarter: 2023Q1

REPORT INFORMATION
  Report Type: Spontaneous
  Country: US (occurrence: US)
  Receive Date: 20220321
  Receipt Date: 20230130
  Transmission Date: 20230417
  Serious: Yes (Hospitalization, Other)
  Sender: FDA-Public Use
  Company Number: US-PFIZER INC-202200418496

PATIENT
  Age: 79 Year
  Sex: Male

DRUGS (2)
  1. VYNDAMAX [Suspect]
     Active Substance: TAFAMIDIS
     Dosage: UNK
  2. VYNDAMAX [Suspect]
     Active Substance: TAFAMIDIS
     Dosage: 61 MG
     Dates: start: 20220315, end: 20220930

REACTIONS (3)
  - Oxygen saturation decreased [Unknown]
  - Cardiac disorder [Unknown]
  - Amyloidosis [Unknown]

NARRATIVE: CASE EVENT DATE: 20220101
